FAERS Safety Report 19417470 (Version 22)
Quarter: 2022Q4

REPORT INFORMATION
  Report Type: Spontaneous
  Country: CA (occurrence: CA)
  Receive Date: 20210614
  Receipt Date: 20221220
  Transmission Date: 20230113
  Serious: Yes (Hospitalization, Other)
  Sender: FDA-Public Use
  Company Number: CA-CELLTRION INC.-2021CA008070

PATIENT

DRUGS (15)
  1. INFLECTRA [Suspect]
     Active Substance: INFLIXIMAB-DYYB
     Indication: Rheumatoid arthritis
     Dosage: 350 MG, INDUCTION AT 0, 2, 6 WEEK DOSE, THEN Q 8 WEEKS
     Route: 042
     Dates: start: 20210422, end: 20210422
  2. INFLECTRA [Suspect]
     Active Substance: INFLIXIMAB-DYYB
     Dosage: 350 MG, REINDUCTION AT 0, 2, 6 WEEK DOSE, THEN Q 8 WEEKS
     Route: 042
     Dates: start: 20210702
  3. INFLECTRA [Suspect]
     Active Substance: INFLIXIMAB-DYYB
     Dosage: 350 MG, INDUCTION AT 0, 2, 6 WEEK DOSE, THEN Q 8 WEEKS
     Route: 042
     Dates: start: 20210716
  4. INFLECTRA [Suspect]
     Active Substance: INFLIXIMAB-DYYB
     Dosage: 350 MG, INDUCTION AT 0, 2, 6 WEEK DOSE, THEN Q 8 WEEKS
     Route: 042
     Dates: start: 20210813
  5. INFLECTRA [Suspect]
     Active Substance: INFLIXIMAB-DYYB
     Dosage: 350 MG, INDUCTION AT 0, 2, 6 WEEK DOSE, THEN Q 8 WEEKS
     Route: 042
     Dates: start: 20211004
  6. INFLECTRA [Suspect]
     Active Substance: INFLIXIMAB-DYYB
     Dosage: 350 MG, INDUCTION AT 0, 2, 6 WEEK DOSE, THEN Q 8 WEEKS
     Route: 042
     Dates: start: 20211203
  7. INFLECTRA [Suspect]
     Active Substance: INFLIXIMAB-DYYB
     Dosage: 350 MG, INDUCTION AT 0, 2, 6 WEEK DOSE, THEN Q 8 WEEKS
     Route: 042
     Dates: start: 20220203
  8. INFLECTRA [Suspect]
     Active Substance: INFLIXIMAB-DYYB
     Dosage: 350 MG  INDUCTION AT 0, 2, 6 WEEK DOSE, THEN Q 8 WEEKS
     Route: 042
     Dates: start: 20220302
  9. INFLECTRA [Suspect]
     Active Substance: INFLIXIMAB-DYYB
     Dosage: 350 MG REINDUCTION AT WEEK 0, 2 AND 6, THEN EVERY 8 WEEKS
     Route: 042
     Dates: start: 20220622
  10. INFLECTRA [Suspect]
     Active Substance: INFLIXIMAB-DYYB
     Dosage: 350 MG, REINDUCTION AT 0, 2, 6 WEEK DOSE, THEN Q 8 WEEKS
     Route: 042
     Dates: start: 20220817
  11. INFLECTRA [Suspect]
     Active Substance: INFLIXIMAB-DYYB
     Dosage: 350 MG, REINDUCTION AT 0, 2, 6 WEEK DOSE, THEN Q 8 WEEKS
     Route: 042
     Dates: start: 20220817
  12. INFLECTRA [Suspect]
     Active Substance: INFLIXIMAB-DYYB
     Dosage: 350 MG, REINDUCTION AT 0, 2, 6 WEEK DOSE, THEN Q 8 WEEKS
     Route: 042
     Dates: start: 20221012
  13. DIPHENHYDRAMINE [Concomitant]
     Active Substance: DIPHENHYDRAMINE
     Indication: Premedication
     Dosage: 50 MG
  14. HYDROCORTISONE [Concomitant]
     Active Substance: HYDROCORTISONE
     Dosage: UNK
  15. HYDROCORTISONE [Concomitant]
     Active Substance: HYDROCORTISONE
     Dosage: UNK

REACTIONS (27)
  - Blood urine present [Unknown]
  - White blood cells urine positive [Unknown]
  - Full blood count increased [Unknown]
  - Abscess limb [Unknown]
  - Sinusitis [Recovered/Resolved]
  - Cerebrovascular accident [Not Recovered/Not Resolved]
  - Seizure [Not Recovered/Not Resolved]
  - Off label use [Unknown]
  - Inappropriate schedule of product administration [Unknown]
  - Urinary tract infection bacterial [Not Recovered/Not Resolved]
  - Dyskinesia [Recovered/Resolved]
  - Weight decreased [Not Recovered/Not Resolved]
  - Nausea [Recovering/Resolving]
  - Somnolence [Unknown]
  - Infection [Recovered/Resolved]
  - Pain in extremity [Not Recovered/Not Resolved]
  - COVID-19 [Recovered/Resolved]
  - Neck pain [Unknown]
  - Headache [Unknown]
  - Pyrexia [Unknown]
  - Lymphadenopathy [Unknown]
  - Myalgia [Unknown]
  - Muscle spasms [Unknown]
  - Stress [Not Recovered/Not Resolved]
  - Malaise [Unknown]
  - C-reactive protein increased [Not Recovered/Not Resolved]
  - Nasopharyngitis [Not Recovered/Not Resolved]

NARRATIVE: CASE EVENT DATE: 20210101
